FAERS Safety Report 8385774-X (Version None)
Quarter: 2012Q2

REPORT INFORMATION
  Report Type: 
  Country: None (occurrence: None)
  Receive Date: 20120523
  Receipt Date: 20120523
  Transmission Date: 20120825
  Serious: Yes (Death)
  Sender: FDA-Public Use
  Company Number: None

PATIENT
  Sex: Female

DRUGS (1)
  1. CLOZAPINE [Suspect]
     Indication: SCHIZOPHRENIA
     Dosage: 300MG QD AT 7:30 PM PO
     Route: 048
     Dates: start: 20080304, end: 20110324

REACTIONS (8)
  - APHAGIA [None]
  - UNRESPONSIVE TO STIMULI [None]
  - PYREXIA [None]
  - DYSPNOEA [None]
  - CARDIAC ARREST [None]
  - MALAISE [None]
  - TREMOR [None]
  - ERYTHEMA [None]
